FAERS Safety Report 17544816 (Version 1)
Quarter: 2020Q1

REPORT INFORMATION
  Report Type: Spontaneous
  Country: DE (occurrence: DE)
  Receive Date: 20200316
  Receipt Date: 20200316
  Transmission Date: 20200409
  Serious: Yes (Other)
  Sender: FDA-Public Use
  Company Number: DE-PFIZER INC-2020110019

PATIENT

DRUGS (1)
  1. CYTOTEC [Suspect]
     Active Substance: MISOPROSTOL
     Indication: LABOUR INDUCTION
     Dosage: 350 UG, UNK (1X 50, 3X 100 MIKROGRAMS)
     Route: 064
     Dates: start: 20121005, end: 20121006

REACTIONS (2)
  - Foetal exposure during delivery [Unknown]
  - Foetal growth restriction [Unknown]
